FAERS Safety Report 9526180 (Version 3)
Quarter: 2013Q4

REPORT INFORMATION
  Report Type: Report from Study
  Country: US (occurrence: US)
  Receive Date: 20130916
  Receipt Date: 20131001
  Transmission Date: 20140711
  Serious: Yes (Hospitalization, Other)
  Sender: FDA-Public Use
  Company Number: US-ABBVIE-13P-163-1113149-00

PATIENT
  Age: 66 Year
  Sex: Female

DRUGS (3)
  1. HUMIRA [Suspect]
     Indication: RHEUMATOID ARTHRITIS
  2. HUMIRA [Suspect]
     Dates: start: 20130715
  3. UNKNOWN MEDICATIONS [Concomitant]
     Indication: PRODUCT USED FOR UNKNOWN INDICATION

REACTIONS (17)
  - Abasia [Unknown]
  - Wound [Not Recovered/Not Resolved]
  - Impaired healing [Unknown]
  - Arthralgia [Unknown]
  - Dyspnoea [Unknown]
  - Arthralgia [Unknown]
  - Gait disturbance [Unknown]
  - Blood glucose decreased [Unknown]
  - Arthropathy [Unknown]
  - Blister [Not Recovered/Not Resolved]
  - Erythema [Unknown]
  - Lower respiratory tract infection [Unknown]
  - Dyspnoea [Unknown]
  - Pruritus [Not Recovered/Not Resolved]
  - Rash macular [Not Recovered/Not Resolved]
  - Hospitalisation [Unknown]
  - Hospitalisation [Unknown]
